FAERS Safety Report 11954034 (Version 1)
Quarter: 2016Q1

REPORT INFORMATION
  Report Type: Not Available
  Country: SE (occurrence: SE)
  Receive Date: 20160125
  Receipt Date: 20160125
  Transmission Date: 20160526
  Serious: Yes (Other)
  Sender: FDA-Public Use
  Company Number: SE-MUNDIPHARMA DS AND PHARMACOVIGILANCE-GBR-2016-0033633

PATIENT

DRUGS (4)
  1. MORPHINE HYDROCHLORIDE [Concomitant]
     Active Substance: MORPHINE HYDROCHLORIDE
     Indication: PAIN
     Dosage: 1 MG/ML 1-10 ML, PRN
     Dates: start: 20151216, end: 20151220
  2. OXYNORM 5 MG KAPSEL, HARD [Suspect]
     Active Substance: OXYCODONE HYDROCHLORIDE
     Indication: ABDOMINAL PAIN
     Dosage: 5 MG, PRN (TOOK 6 TABLETS IN TOTAL)
     Route: 048
     Dates: start: 20151218, end: 20151220
  3. OMEPRAZOLE. [Concomitant]
     Active Substance: OMEPRAZOLE
  4. LOSARTAN. [Concomitant]
     Active Substance: LOSARTAN

REACTIONS (2)
  - Hallucination, visual [Unknown]
  - Dizziness [Unknown]

NARRATIVE: CASE EVENT DATE: 201512
